FAERS Safety Report 5102945-6 (Version None)
Quarter: 2006Q3

REPORT INFORMATION
  Report Type: 
  Country: None (occurrence: None)
  Receive Date: 20060908
  Receipt Date: 20060828
  Transmission Date: 20061208
  Serious: Yes (Other)
  Sender: FDA-Public Use
  Company Number: 2005167994

PATIENT
  Age: 37 Year
  Sex: Female
  Weight: 133.8111 kg

DRUGS (27)
  1. ZMAX [Suspect]
     Indication: HYPERSENSITIVITY
     Dosage: 10 MG (10 MG, FREQUENCY:  BID INTERVAL: EVERY DAY), ORAL
     Route: 048
     Dates: start: 20031001, end: 20051203
  2. ZITHROMAX [Suspect]
     Indication: SINUSITIS
     Dosage: 250 MG (250 MG, 1 IN 1 D)
     Dates: end: 20050701
  3. ZITHROMAX [Suspect]
     Indication: UPPER RESPIRATORY TRACT INFECTION
     Dosage: 250 MG (250 MG, 1 IN 1 D)
     Dates: end: 20050701
  4. DIFLUCAN [Suspect]
     Indication: FUNGAL INFECTION
     Dates: start: 20051205
  5. ZYRTEC [Suspect]
     Indication: HYPERSENSITIVITY
     Dosage: 10 MG (2 IN 1 D)
  6. TOPAMAX [Concomitant]
  7. QVAR (BECLOMETASONE DIPROPIONATE) [Concomitant]
  8. PULMICORT [Concomitant]
  9. LAMICTAL [Concomitant]
  10. NORTRIPTYLINE HCL [Concomitant]
  11. NEXIUM (ESOMEPRAZOE) [Concomitant]
  12. NASONEX [Concomitant]
  13. SALINE MIXTURE (AMMONIUM ACETATE, CAMPHOR WATER, SODIUM CITRATE, SODIU [Concomitant]
  14. MORPHINE SULFATE [Concomitant]
  15. PHENERGAN WITH CODEINE (CHLOROFORM, CITRIC ACID, CODEINE PHOSPHATE, IP [Concomitant]
  16. VERAPAMIL [Concomitant]
  17. ALL OTHER THERAPEUTIC PRODUCTS (ALL OTHER THERAPEUTIC PRODUCTS) [Concomitant]
  18. ALBUTEROL [Concomitant]
  19. XOPENEX [Concomitant]
  20. DEMADEX [Concomitant]
  21. ACTIVE NASAL SPRAY (NASAL PREPARATIONS) [Concomitant]
  22. KLONOPIN [Concomitant]
  23. METFORMIN HCL [Concomitant]
  24. ^PALMACORT^ (ALL OTHER THERAPEUTIC PRODUCTS) [Concomitant]
  25. VICODIN [Concomitant]
  26. FERROUS SULPHIDE (FERROUS SULFATE) [Concomitant]
  27. XOPENEX SALINE NASAL SPRAY (LEVOSALBUTAMOL) [Concomitant]

REACTIONS (12)
  - DEPRESSED LEVEL OF CONSCIOUSNESS [None]
  - DRUG DOSE OMISSION [None]
  - FUNGAL INFECTION [None]
  - GAIT DISTURBANCE [None]
  - NEPHROLITHIASIS [None]
  - PANNICULITIS [None]
  - PULMONARY THROMBOSIS [None]
  - SINUSITIS [None]
  - THROMBOSIS [None]
  - TREATMENT NONCOMPLIANCE [None]
  - UPPER RESPIRATORY TRACT INFECTION [None]
  - VICTIM OF CRIME [None]
